FAERS Safety Report 6071023-4 (Version None)
Quarter: 2009Q1

REPORT INFORMATION
  Report Type: 
  Country: None (occurrence: None)
  Receive Date: 20090209
  Receipt Date: 20090202
  Transmission Date: 20090719
  Serious: Yes (Hospitalization)
  Sender: FDA-Public Use
  Company Number: B0557028A

PATIENT
  Age: 90 Year
  Sex: Female

DRUGS (12)
  1. AUGMENTIN '125' [Suspect]
     Indication: DRUG USE FOR UNKNOWN INDICATION
     Dosage: 2UNIT TWICE PER DAY
     Route: 048
     Dates: start: 20081211
  2. PREVISCAN [Suspect]
     Indication: ATRIAL FIBRILLATION
     Dosage: 20MG PER DAY
     Route: 048
     Dates: start: 20081216, end: 20081219
  3. DOLIPRANE [Suspect]
     Indication: PAIN
     Dosage: 500MG AS REQUIRED
     Route: 048
  4. PLAVIX [Concomitant]
  5. KENZEN [Concomitant]
  6. FUROSEMIDE [Concomitant]
  7. RAMIPRIL [Concomitant]
  8. EFFEXOR [Concomitant]
  9. SULPIRIDE [Concomitant]
  10. CALCIUM FORTE [Concomitant]
  11. ACETAMINOPHEN AND CODEINE PHOSPHATE [Concomitant]
     Indication: PAIN
  12. PARIET [Concomitant]

REACTIONS (2)
  - HYPOPROTHROMBINAEMIA [None]
  - INTERNATIONAL NORMALISED RATIO INCREASED [None]
